FAERS Safety Report 13665998 (Version 1)
Quarter: 2017Q2

REPORT INFORMATION
  Report Type: Report from Study
  Country: US (occurrence: US)
  Receive Date: 20170619
  Receipt Date: 20170619
  Transmission Date: 20170830
  Serious: Yes (Hospitalization)
  Sender: FDA-Public Use
  Company Number: US-ACTELION-A-NJ2017-155341

PATIENT
  Age: 55 Year
  Sex: Male

DRUGS (13)
  1. ATORVASTATIN [Concomitant]
     Active Substance: ATORVASTATIN
     Dosage: 80 MG, UNK
     Dates: start: 2012
  2. CLONAZEPAM. [Concomitant]
     Active Substance: CLONAZEPAM
     Dosage: 25 MG, UNK
     Dates: start: 2012
  3. TIZANIDINE. [Concomitant]
     Active Substance: TIZANIDINE
     Dosage: 4 MG, UNK
     Dates: start: 2012
  4. COMPAZINE [Concomitant]
     Active Substance: PROCHLORPERAZINE MALEATE
     Dosage: 25 MG, UNK
     Dates: start: 2012
  5. MELOXICAM. [Concomitant]
     Active Substance: MELOXICAM
     Dosage: 7.5 MG, BID
     Dates: start: 2012
  6. ASPIRIN. [Concomitant]
     Active Substance: ASPIRIN
     Dosage: 81 MG, UNK
     Dates: start: 2012
  7. OPSUMIT [Suspect]
     Active Substance: MACITENTAN
     Indication: PULMONARY ARTERIAL HYPERTENSION
     Dosage: 10 MG, UNK
     Route: 048
     Dates: start: 201703
  8. FUROSEMIDE. [Concomitant]
     Active Substance: FUROSEMIDE
     Dosage: 40 MG, UNK
     Dates: start: 2012
  9. OMEPRAZOLE. [Concomitant]
     Active Substance: OMEPRAZOLE
     Dosage: 20 MG, UNK
     Dates: start: 2012
  10. COLACE [Concomitant]
     Active Substance: DOCUSATE SODIUM
     Dosage: 100 MG, PRN
     Dates: start: 2012
  11. GABAPENTIN. [Concomitant]
     Active Substance: GABAPENTIN
     Dosage: 600 MG, UNK
     Dates: start: 2012
  12. OXYCODONE [Concomitant]
     Active Substance: OXYCODONE
     Dosage: 10 MG, UNK
     Dates: start: 2012
  13. LISINOPRIL. [Concomitant]
     Active Substance: LISINOPRIL
     Dosage: 10 MG, UNK
     Dates: start: 2012

REACTIONS (3)
  - Loss of consciousness [Recovered/Resolved]
  - Limb injury [Recovered/Resolved]
  - Fall [Recovered/Resolved]

NARRATIVE: CASE EVENT DATE: 201705
